FAERS Safety Report 16324012 (Version 1)
Quarter: 2019Q2

REPORT INFORMATION
  Report Type: Other
  Country: ES (occurrence: ES)
  Receive Date: 20190517
  Receipt Date: 20190517
  Transmission Date: 20190711
  Serious: Yes (Hospitalization, Other)
  Sender: FDA-Public Use
  Company Number: ES-ASTELLAS-2019US020333

PATIENT
  Age: 61 Year
  Sex: Female

DRUGS (3)
  1. VESICARE [Suspect]
     Active Substance: SOLIFENACIN SUCCINATE
     Indication: PRODUCT USED FOR UNKNOWN INDICATION
     Dosage: 10 MG, ONCE DAILY (EVERY 24 HOURS) (0-0-1)
     Route: 048
     Dates: start: 20130513
  2. LORAZEPAM. [Suspect]
     Active Substance: LORAZEPAM
     Indication: PRODUCT USED FOR UNKNOWN INDICATION
     Dosage: UNK UNK, UNKNOWN FREQ.
     Route: 065
     Dates: start: 20180521, end: 20180529
  3. LORAZEPAM. [Suspect]
     Active Substance: LORAZEPAM
     Dosage: 1 MG, ONCE DAILY (EVERY 24 HOURS) (0-0-1 MG)
     Route: 048
     Dates: start: 20181213, end: 20181219

REACTIONS (2)
  - Pancreatitis acute [Recovered/Resolved]
  - Pancreatitis acute [Recovered/Resolved]

NARRATIVE: CASE EVENT DATE: 20180529
